FAERS Safety Report 21286696 (Version 2)
Quarter: 2022Q3

REPORT INFORMATION
  Report Type: Report from Study
  Country: CN (occurrence: None)
  Receive Date: 20220902
  Receipt Date: 20220909
  Transmission Date: 20221027
  Serious: Yes (Hospitalization)
  Sender: FDA-Public Use
  Company Number: CN-ROCHE-3169921

PATIENT
  Age: 63 Year
  Sex: Male
  Weight: 57 kg

DRUGS (2)
  1. VEMURAFENIB [Suspect]
     Active Substance: VEMURAFENIB
     Indication: Neoplasm
     Route: 065
     Dates: start: 20220408, end: 20220610
  2. VEMURAFENIB [Suspect]
     Active Substance: VEMURAFENIB
     Route: 065
     Dates: start: 20220628, end: 20220811

REACTIONS (6)
  - Arthritis reactive [Unknown]
  - Osteoarthritis [Unknown]
  - Meniscal degeneration [Unknown]
  - Joint effusion [Unknown]
  - Meniscus injury [Unknown]
  - Osteoarthritis [Not Recovered/Not Resolved]

NARRATIVE: CASE EVENT DATE: 20220731
